FAERS Safety Report 13110867 (Version 1)
Quarter: 2017Q1

REPORT INFORMATION
  Report Type: Report from Study
  Country: US (occurrence: US)
  Receive Date: 20170112
  Receipt Date: 20170112
  Transmission Date: 20170428
  Serious: Yes (Hospitalization, Other)
  Sender: FDA-Public Use
  Company Number: US-ASTELLAS-2016US048419

PATIENT
  Age: 90 Year
  Sex: Female

DRUGS (12)
  1. ERLOTINIB [Suspect]
     Active Substance: ERLOTINIB
     Route: 048
  2. ERLOTINIB [Suspect]
     Active Substance: ERLOTINIB
     Route: 048
  3. ERLOTINIB [Suspect]
     Active Substance: ERLOTINIB
     Route: 048
  4. GLIPIZIDE. [Concomitant]
     Active Substance: GLIPIZIDE
     Indication: DIABETES MELLITUS
     Route: 048
  5. METFORMIN [Concomitant]
     Active Substance: METFORMIN HYDROCHLORIDE
     Indication: DIABETES MELLITUS
     Route: 048
  6. ASPIRIN. [Concomitant]
     Active Substance: ASPIRIN
     Indication: PRODUCT USED FOR UNKNOWN INDICATION
     Route: 054
  7. CARDIZEM CD [Concomitant]
     Active Substance: DILTIAZEM HYDROCHLORIDE
     Indication: HYPERTENSION
     Route: 048
  8. ERLOTINIB [Suspect]
     Active Substance: ERLOTINIB
     Indication: LUNG NEOPLASM MALIGNANT
     Route: 048
     Dates: start: 20160721, end: 20161209
  9. ERLOTINIB [Suspect]
     Active Substance: ERLOTINIB
     Indication: BRONCHIAL CARCINOMA
     Dosage: UNK, UNKNOWN FREQ.
     Route: 048
     Dates: start: 201610
  10. ERLOTINIB [Suspect]
     Active Substance: ERLOTINIB
     Dosage: UNK UNK, ONCE DAILY
     Route: 048
     Dates: start: 201611, end: 20161130
  11. METOPROLOL. [Concomitant]
     Active Substance: METOPROLOL
     Indication: HYPERTENSION
     Dosage: (1 1/2 DRUG) 50 MG, TWICE DAILY
     Route: 048
  12. PANTOPRAZOLE [Concomitant]
     Active Substance: PANTOPRAZOLE SODIUM
     Indication: GASTROOESOPHAGEAL REFLUX DISEASE
     Route: 048

REACTIONS (14)
  - Diplegia [Unknown]
  - Memory impairment [Unknown]
  - Asthenia [Unknown]
  - Fall [Recovered/Resolved]
  - Bone pain [Not Recovered/Not Resolved]
  - Depression [Unknown]
  - Off label use [Unknown]
  - Visual acuity reduced [Unknown]
  - Confusional state [Recovered/Resolved]
  - Fatigue [Unknown]
  - Performance status decreased [Recovering/Resolving]
  - Urinary tract infection [Recovered/Resolved]
  - Thinking abnormal [Not Recovered/Not Resolved]
  - Pain of skin [Unknown]

NARRATIVE: CASE EVENT DATE: 201608
